FAERS Safety Report 18256844 (Version 1)
Quarter: 2020Q3

REPORT INFORMATION
  Report Type: Spontaneous
  Country: ZA (occurrence: ZA)
  Receive Date: 20200911
  Receipt Date: 20200911
  Transmission Date: 20201103
  Serious: Yes (Other)
  Sender: FDA-Public Use
  Company Number: ZA-ROCHE-2675309

PATIENT
  Sex: Male
  Weight: 94 kg

DRUGS (2)
  1. REMDESIVIR. [Suspect]
     Active Substance: REMDESIVIR
     Indication: PRODUCT USED FOR UNKNOWN INDICATION
     Route: 065
  2. ACTEMRA [Suspect]
     Active Substance: TOCILIZUMAB
     Indication: COVID-19
     Dosage: FREQUENCY: STAT
     Route: 042
     Dates: start: 20200825, end: 20200825

REACTIONS (3)
  - Off label use [Unknown]
  - Hypoxia [Recovering/Resolving]
  - Intentional product use issue [Unknown]
